FAERS Safety Report 9285540 (Version 1)
Quarter: 2013Q2

REPORT INFORMATION
  Report Type: Spontaneous
  Country: FR (occurrence: None)
  Receive Date: 20130507
  Receipt Date: 20130507
  Transmission Date: 20140414
  Serious: Yes (Life-Threatening)
  Sender: FDA-Public Use
  Company Number: 2013MP100243

PATIENT
  Age: 24 Year
  Sex: Male

DRUGS (1)
  1. BRENTUXIMAB VEDOTIN (BRENTUXIMAB VEDOTIN) INJECTION [Suspect]
     Indication: HODGKIN^S DISEASE
     Dosage: 115 MG, Q21D, INTRAVENOUS
     Route: 042
     Dates: start: 20130319, end: 20130319

REACTIONS (5)
  - Respiratory distress [None]
  - Bronchitis [None]
  - Vena cava thrombosis [None]
  - Pelvic venous thrombosis [None]
  - Blood pressure decreased [None]
